FAERS Safety Report 9000117 (Version 1)
Quarter: 2013Q1

REPORT INFORMATION
  Report Type: Spontaneous
  Country: US (occurrence: US)
  Receive Date: 20130102
  Receipt Date: 20130102
  Transmission Date: 20140127
  Serious: Yes (Other)
  Sender: FDA-Public Use
  Company Number: US-PFIZER INC-2013000096

PATIENT
  Age: 61 Year
  Sex: Female
  Weight: 45.35 kg

DRUGS (1)
  1. CHANTIX [Suspect]
     Indication: SMOKING CESSATION THERAPY
     Dosage: UNK
     Route: 048

REACTIONS (10)
  - Dysarthria [Unknown]
  - Gait disturbance [Unknown]
  - Dysphagia [Unknown]
  - Aphagia [Unknown]
  - Bedridden [Unknown]
  - Weight decreased [Unknown]
  - VIIth nerve paralysis [Unknown]
  - Paralysis [Unknown]
  - Grip strength decreased [Unknown]
  - Lip disorder [Unknown]
